FAERS Safety Report 14296705 (Version 2)
Quarter: 2018Q1

REPORT INFORMATION
  Report Type: Spontaneous
  Country: US (occurrence: US)
  Receive Date: 20171218
  Receipt Date: 20180220
  Transmission Date: 20180509
  Serious: Yes (Hospitalization, Other)
  Sender: FDA-Public Use
  Company Number: US-PFIZER INC-2017534937

PATIENT
  Age: 72 Year
  Sex: Female
  Weight: 55.33 kg

DRUGS (2)
  1. PREDNISONE. [Concomitant]
     Active Substance: PREDNISONE
     Dosage: UNK, DAILY (14 AND A HALF MG A DAY, LATER STATED 14 MG)
     Route: 048
  2. XELJANZ XR [Suspect]
     Active Substance: TOFACITINIB CITRATE
     Indication: RHEUMATOID ARTHRITIS
     Dosage: 11 MG, 1X/DAY
     Route: 048
     Dates: start: 201708, end: 201709

REACTIONS (7)
  - Skin ulcer [Not Recovered/Not Resolved]
  - Fracture [Unknown]
  - Wound [Not Recovered/Not Resolved]
  - Localised infection [Recovered/Resolved]
  - Foot fracture [Recovered/Resolved]
  - Infection [Unknown]
  - Cellulitis [Unknown]

NARRATIVE: CASE EVENT DATE: 201708
